FAERS Safety Report 9759981 (Version 1)
Quarter: 2013Q4

REPORT INFORMATION
  Report Type: Spontaneous
  Country: US (occurrence: US)
  Receive Date: 20131216
  Receipt Date: 20131216
  Transmission Date: 20140711
  Serious: Yes (Other)
  Sender: FDA-Public Use
  Company Number: US-BAYER-2013-153220

PATIENT
  Age: 15 Year
  Sex: Female
  Weight: 59.86 kg

DRUGS (7)
  1. YAZ [Suspect]
  2. GIANVI [Suspect]
  3. BACTRIM [Concomitant]
     Indication: ACNE
     Dosage: 800-160 MG DAILY
     Route: 048
  4. RANITIDINE [Concomitant]
     Dosage: 300 MG, UNK
  5. CLINDAMYCIN [Concomitant]
     Dosage: 1 %, UNK
  6. DICYCLOMINE [Concomitant]
     Dosage: 20 MG, BID
     Route: 048
  7. OMEPRAZOLE [Concomitant]
     Dosage: ONE TABLET EVERY MORNING
     Route: 048

REACTIONS (3)
  - Cholecystitis chronic [None]
  - Biliary dyskinesia [None]
  - Cholecystectomy [None]
